FAERS Safety Report 7484855-2 (Version None)
Quarter: 2011Q2

REPORT INFORMATION
  Report Type: 
  Country: None (occurrence: None)
  Receive Date: 20110517
  Receipt Date: 20110510
  Transmission Date: 20111010
  Serious: Yes (Hospitalization)
  Sender: FDA-Public Use
  Company Number: A0774921A

PATIENT
  Age: 67 Year
  Sex: Male
  Weight: 93.2 kg

DRUGS (21)
  1. METOPROLOL SUCCINATE [Concomitant]
  2. ASPIRIN [Concomitant]
  3. SYNTHROID [Concomitant]
  4. AMIODARONE HCL [Concomitant]
  5. DIGOXIN [Concomitant]
  6. ATENOLOL [Concomitant]
  7. WARFARIN SODIUM [Concomitant]
  8. CYCLOBENZAPRINE [Concomitant]
  9. AVAPRO [Concomitant]
  10. FUROSEMIDE [Concomitant]
  11. POTASSIUM [Concomitant]
  12. HYTRIN [Concomitant]
  13. LANOXIN [Concomitant]
  14. LIPITOR [Concomitant]
  15. LASIX [Concomitant]
  16. SPIRONOLACTONE [Concomitant]
  17. AVANDIA [Suspect]
     Dosage: 4MG PER DAY
     Route: 048
     Dates: start: 19990820, end: 20070615
  18. TERAZOSIN HCL [Concomitant]
  19. GLUCOTROL XL [Concomitant]
  20. LOPRESSOR [Concomitant]
  21. VERAPAMIL [Concomitant]

REACTIONS (4)
  - ATRIOVENTRICULAR BLOCK [None]
  - VENTRICULAR TACHYCARDIA [None]
  - MYOCARDIAL INFARCTION [None]
  - CARDIAC FAILURE CONGESTIVE [None]
